FAERS Safety Report 14929647 (Version 1)
Quarter: 2018Q2

REPORT INFORMATION
  Report Type: Spontaneous
  Country: FR (occurrence: FR)
  Receive Date: 20180523
  Receipt Date: 20180523
  Transmission Date: 20180711
  Serious: Yes (Death, Life-Threatening)
  Sender: FDA-Public Use
  Company Number: FR-PFIZER INC-2018208079

PATIENT
  Age: 26 Year
  Sex: Male
  Weight: 65 kg

DRUGS (6)
  1. ARACYTINE [Suspect]
     Active Substance: CYTARABINE
     Indication: BONE MARROW TRANSPLANT
     Dosage: 3600 MG, 1X/DAY
     Route: 042
     Dates: start: 20171026, end: 20171029
  2. MESNA EG [Suspect]
     Active Substance: MESNA
     Dosage: UNK
     Route: 042
     Dates: start: 20171102, end: 20171112
  3. BUSILVEX [Suspect]
     Active Substance: BUSULFAN
     Indication: BONE MARROW TRANSPLANT
     Dosage: 3.2 MG/KG, 1X/DAY
     Route: 042
     Dates: start: 20171103, end: 20171104
  4. AMSACRINE [Suspect]
     Active Substance: AMSACRINE
     Indication: BONE MARROW TRANSPLANT
     Dosage: 180 MG, 1X/DAY
     Route: 042
     Dates: start: 20171026, end: 20171029
  5. FLUDARABINE [Suspect]
     Active Substance: FLUDARABINE PHOSPHATE
     Indication: BONE MARROW TRANSPLANT
     Dosage: 20 MG/M2, 1X/DAY
     Route: 042
     Dates: start: 20171026, end: 20171029
  6. ENDOXAN /00021101/ [Suspect]
     Active Substance: CYCLOPHOSPHAMIDE
     Indication: BONE MARROW TRANSPLANT
     Dosage: 60 MG/KG, 3 TAKEN : 02/11, 11/11 AND 12/11
     Route: 042
     Dates: start: 20171102, end: 20171111

REACTIONS (3)
  - Venoocclusive liver disease [Fatal]
  - Septic shock [Fatal]
  - Multiple organ dysfunction syndrome [Fatal]

NARRATIVE: CASE EVENT DATE: 201711
